FAERS Safety Report 8273350-9 (Version None)
Quarter: 2012Q2

REPORT INFORMATION
  Report Type: 
  Country: None (occurrence: None)
  Receive Date: 20120411
  Receipt Date: 20120404
  Transmission Date: 20120825
  Serious: Yes (Death, Other)
  Sender: FDA-Public Use
  Company Number: PHHY2012BR029548

PATIENT
  Sex: Female

DRUGS (8)
  1. SPIRONOLACTONE [Concomitant]
     Indication: CARDIAC DISORDER
     Dosage: 1 DF, QD
     Route: 048
  2. OMEPRAZOLE [Concomitant]
     Dosage: 1 DF, QD
  3. FORMOTEROL FUMARATE [Suspect]
     Indication: EMPHYSEMA
     Dosage: 2 DF, QD
  4. DIGEDRAT [Concomitant]
     Indication: DIVERTICULITIS
     Dosage: 2 DF, QD
     Route: 048
  5. SUSTRATE [Concomitant]
     Indication: CARDIAC DISORDER
     Dosage: 2 DF, QD
  6. CARBAMAZEPINE [Concomitant]
     Indication: TRIGEMINAL NERVE DISORDER
     Dosage: 2 DF, QD
     Route: 048
  7. SINGULAIR [Concomitant]
     Indication: EMPHYSEMA
     Dosage: 1 DF, QD
     Route: 048
  8. LOSARTAN POTASSIUM [Concomitant]
     Indication: HYPERTENSION
     Dosage: 2 DF, QD
     Route: 048

REACTIONS (4)
  - ISCHAEMIC STROKE [None]
  - PNEUMONIA [None]
  - DIVERTICULITIS [None]
  - SEPSIS [None]
